FAERS Safety Report 5657409-8 (Version None)
Quarter: 2008Q1

REPORT INFORMATION
  Report Type: 
  Country: None (occurrence: None)
  Receive Date: 20080310
  Receipt Date: 20080301
  Transmission Date: 20080703
  Serious: Yes (Hospitalization)
  Sender: FDA-Public Use
  Company Number: PHHY2008MX02449

PATIENT
  Age: 69 Year
  Sex: Male

DRUGS (1)
  1. DIOVAN [Suspect]
     Indication: HYPERTENSION
     Dosage: 80 MG, QD
     Route: 048
     Dates: start: 20060701, end: 20080201

REACTIONS (4)
  - ARTERIAL OCCLUSIVE DISEASE [None]
  - HYPOGLYCAEMIA [None]
  - RENAL DISORDER [None]
  - TACHYCARDIA [None]
